FAERS Safety Report 6616569-2 (Version None)
Quarter: 2010Q1

REPORT INFORMATION
  Report Type: 
  Country: None (occurrence: None)
  Receive Date: 20100305
  Receipt Date: 20100225
  Transmission Date: 20100710
  Serious: Yes (Hospitalization, Congenital Anomaly, Other)
  Sender: FDA-Public Use
  Company Number: US-AMGEN-US201521

PATIENT
  Sex: Female

DRUGS (16)
  1. ENBREL [Suspect]
     Route: 064
     Dates: start: 20060101, end: 20060121
  2. PREDNISONE [Concomitant]
     Route: 064
     Dates: start: 20060210, end: 20060630
  3. PREDNISONE [Concomitant]
     Dates: start: 20060701, end: 20061010
  4. CALCIUM [Concomitant]
     Route: 064
     Dates: start: 20060107, end: 20060217
  5. TYLENOL-500 [Concomitant]
     Route: 064
     Dates: start: 20060128, end: 20060210
  6. TYLENOL-500 [Concomitant]
     Route: 064
     Dates: start: 20060701, end: 20060730
  7. ALEVE (CAPLET) [Concomitant]
     Route: 064
     Dates: start: 20060129, end: 20060210
  8. VITAMIN TAB [Concomitant]
     Route: 064
     Dates: start: 20060210, end: 20061010
  9. CAFFEINE CITRATE [Concomitant]
     Route: 064
     Dates: start: 20060315, end: 20061010
  10. AVELOX [Concomitant]
     Route: 064
     Dates: start: 20060320, end: 20060324
  11. ZITHROMAX [Concomitant]
     Route: 064
     Dates: start: 20060325, end: 20060329
  12. AMOXICILLIN [Concomitant]
     Route: 064
     Dates: start: 20060401, end: 20060414
  13. AMOXICILLIN [Concomitant]
     Route: 064
     Dates: start: 20060420, end: 20060502
  14. ELIDEL [Concomitant]
     Route: 064
     Dates: start: 20060107, end: 20060827
  15. HYDROCORTISONE [Concomitant]
     Route: 064
     Dates: start: 20060107, end: 20060701
  16. LIDOCAINE [Concomitant]
     Route: 064
     Dates: start: 20060814, end: 20060814

REACTIONS (5)
  - HYPOGLYCAEMIA [None]
  - PNEUMONIA [None]
  - PULMONARY ARTERY STENOSIS CONGENITAL [None]
  - RESPIRATORY SYNCYTIAL VIRUS INFECTION [None]
  - VENTRICULAR SEPTAL DEFECT [None]
